FAERS Safety Report 6589599-7 (Version None)
Quarter: 2010Q1

REPORT INFORMATION
  Report Type: 
  Country: None (occurrence: None)
  Receive Date: 20100212
  Receipt Date: 20100202
  Transmission Date: 20100710
  Serious: Yes (Hospitalization)
  Sender: FDA-Public Use
  Company Number: DSU-2010-00403

PATIENT
  Sex: Female
  Weight: 97.5234 kg

DRUGS (6)
  1. BENICAR HCT [Suspect]
     Indication: HYPERTENSION
     Dosage: 40/12.5MG QD, PER ORAL
     Route: 048
     Dates: start: 20020101, end: 20050101
  2. BENICAR [Suspect]
     Indication: HYPERTENSION
     Dosage: 40 MG (40 MG, QD), PER ORAL, 20 MG (20 MG, QD), PER ORAL
     Route: 048
     Dates: start: 20050101, end: 20080101
  3. BENICAR [Suspect]
     Indication: HYPERTENSION
     Dosage: 40 MG (40 MG, QD), PER ORAL, 20 MG (20 MG, QD), PER ORAL
     Route: 048
     Dates: start: 20080101
  4. HYDROCHLOROTHIAZIDE [Suspect]
     Indication: HYPERTENSION
     Dosage: 12.5 MG (12.5 MG, QD), PER ORAL
     Route: 048
     Dates: start: 20050101, end: 20080101
  5. INSULIN (INSULIN) (INJECTION) (INSULIN) [Concomitant]
  6. ASPIRIN [Concomitant]

REACTIONS (6)
  - ABDOMINAL PAIN UPPER [None]
  - BLOOD PRESSURE DECREASED [None]
  - CAROTID ARTERY OCCLUSION [None]
  - CEREBROVASCULAR ACCIDENT [None]
  - DIARRHOEA [None]
  - TRANSIENT ISCHAEMIC ATTACK [None]
